FAERS Safety Report 5741055-1 (Version None)
Quarter: 2008Q2

REPORT INFORMATION
  Report Type: 
  Country: None (occurrence: None)
  Receive Date: 20080514
  Receipt Date: 20080506
  Transmission Date: 20081010
  Serious: Yes (Life-Threatening, Hospitalization, Other)
  Sender: FDA-Public Use
  Company Number: CLOF-10787

PATIENT
  Age: 68 Year
  Sex: Female
  Weight: 86.3 kg

DRUGS (1)
  1. CLOFARABINE (CLOFARABINE) 30 MG/M2 [Suspect]
     Indication: MYELOID LEUKAEMIA
     Dosage: 57.6 MG, QD; INTRAVENOUS
     Route: 042
     Dates: start: 20071115, end: 20071119

REACTIONS (7)
  - ABDOMINAL DISTENSION [None]
  - ANAEMIA [None]
  - DISEASE RECURRENCE [None]
  - GASTROINTESTINAL HAEMORRHAGE [None]
  - HAEMOPTYSIS [None]
  - MARROW HYPERPLASIA [None]
  - THROMBOCYTOPENIA [None]
